FAERS Safety Report 9768008 (Version 1)
Quarter: 2013Q4

REPORT INFORMATION
  Report Type: Spontaneous
  Country: US (occurrence: None)
  Receive Date: 20131217
  Receipt Date: 20131217
  Transmission Date: 20140711
  Serious: Yes (Hospitalization, Other)
  Sender: FDA-Public Use
  Company Number: 2012BAX018501

PATIENT
  Age: 58 Year
  Sex: Female
  Weight: 99 kg

DRUGS (2)
  1. GAMMAGARD LIQUID (IMMUNOGLOBULIN, NORMAL HUMAN) (SOLUTION FOR INFUSI [Suspect]
     Indication: DEMYELINATING POLYNEUROPATHY
     Dosage: 40 GM (40 GM, 1 IN 1 D), INTRAVENOUS?40 GM (40 GM, 1 IN 1 D) , INTRAVENOUS ?40 GM (40 GM , 1 IN 1 D)
  2. GAMMAGARD LIQUID (IMMUNOGLOBULIN, NORMAL HUMAN) (SOLUTION FOR INFUSI [Suspect]
     Indication: OFF LABEL USE
     Dosage: 40 GM (40 GM, 1 IN 1 D), INTRAVENOUS?40 GM (40 GM, 1 IN 1 D) , INTRAVENOUS ?40 GM (40 GM , 1 IN 1 D)

REACTIONS (2)
  - Meningitis aseptic [None]
  - Asthenia [None]
